FAERS Safety Report 10396288 (Version 1)
Quarter: 2014Q3

REPORT INFORMATION
  Report Type: Spontaneous
  Country: US (occurrence: None)
  Receive Date: 20140818
  Receipt Date: 20140818
  Transmission Date: 20150326
  Serious: No
  Sender: FDA-Public Use
  Company Number: None

PATIENT
  Age: 63 Year
  Sex: Male

DRUGS (1)
  1. HUMIRA [Suspect]
     Active Substance: ADALIMUMAB
     Indication: PSORIASIS
     Dosage: 40?QOW?SQ
     Route: 058
     Dates: start: 201405

REACTIONS (2)
  - Pneumonia [None]
  - Infection [None]

NARRATIVE: CASE EVENT DATE: 20140815
